FAERS Safety Report 11656942 (Version 1)
Quarter: 2015Q4

REPORT INFORMATION
  Report Type: Spontaneous
  Country: US (occurrence: US)
  Receive Date: 20151023
  Receipt Date: 20151023
  Transmission Date: 20160304
  Serious: No
  Sender: FDA-Public Use
  Company Number: US-SUNOVION-2015SUN000579

PATIENT

DRUGS (2)
  1. APTIOM [Suspect]
     Active Substance: ESLICARBAZEPINE ACETATE
     Dosage: 1200 MG, UNK
     Route: 048
     Dates: start: 20151006
  2. APTIOM [Suspect]
     Active Substance: ESLICARBAZEPINE ACETATE
     Indication: SEIZURE
     Dosage: 800 MG, UNK
     Route: 048
     Dates: start: 20150918

REACTIONS (2)
  - Rash generalised [Unknown]
  - Local swelling [Recovered/Resolved]

NARRATIVE: CASE EVENT DATE: 20151013
